FAERS Safety Report 19769962 (Version 1)
Quarter: 2021Q3

REPORT INFORMATION
  Report Type: Spontaneous
  Country: US (occurrence: US)
  Receive Date: 20210830
  Receipt Date: 20210830
  Transmission Date: 20211014
  Serious: No
  Sender: FDA-Public Use
  Company Number: None

PATIENT
  Age: 46 Year
  Sex: Female

DRUGS (2)
  1. ATAZANAVIR 200MG AMNEAL PHARMACEUTICALS [Suspect]
     Active Substance: ATAZANAVIR
     Indication: HIV INFECTION
     Route: 048
     Dates: start: 20200711, end: 202105
  2. ABACAVIR/LAMIVUDINE 600/300MG LUPIN PHARMACEUTICALS [Suspect]
     Active Substance: ABACAVIR\LAMIVUDINE
     Indication: HIV INFECTION
     Dosage: ?          OTHER DOSE:600/300MG;?
     Route: 048
     Dates: start: 20200711

REACTIONS (4)
  - Influenza like illness [None]
  - Rash erythematous [None]
  - Therapy cessation [None]
  - Myalgia [None]

NARRATIVE: CASE EVENT DATE: 202104
